FAERS Safety Report 18789704 (Version 2)
Quarter: 2021Q1

REPORT INFORMATION
  Report Type: Spontaneous
  Country: GB (occurrence: GB)
  Receive Date: 20210126
  Receipt Date: 20210201
  Transmission Date: 20210419
  Serious: Yes (Hospitalization, Other)
  Sender: FDA-Public Use
  Company Number: GB-ABBVIE-21K-167-3737641-00

PATIENT
  Age: 17 Year
  Sex: Female

DRUGS (3)
  1. HUMIRA [Suspect]
     Active Substance: ADALIMUMAB
     Indication: PSORIASIS
     Route: 058
     Dates: start: 2018, end: 201812
  2. USTEKINUMAB [Concomitant]
     Active Substance: USTEKINUMAB
     Indication: PRODUCT USED FOR UNKNOWN INDICATION
  3. HUMIRA [Suspect]
     Active Substance: ADALIMUMAB
     Indication: CROHN^S DISEASE
     Route: 058
     Dates: start: 201809, end: 201809

REACTIONS (30)
  - Colitis [Unknown]
  - Pyrexia [Unknown]
  - Gastric ulcer [Unknown]
  - Underweight [Unknown]
  - Abdominal wound dehiscence [Unknown]
  - Physical deconditioning [Unknown]
  - Bedridden [Unknown]
  - Excessive granulation tissue [Unknown]
  - Granuloma gluteale infantum [Unknown]
  - Pelvic discomfort [Unknown]
  - Injection site reaction [Unknown]
  - Extremity contracture [Unknown]
  - Skin ulcer [Unknown]
  - Maternal exposure during pregnancy [Unknown]
  - Live birth [Unknown]
  - Peritoneal disorder [Unknown]
  - Pain [Unknown]
  - Proctectomy [Unknown]
  - Anal abscess [Unknown]
  - Arthritis bacterial [Unknown]
  - Pelvic discomfort [Unknown]
  - Inflammation [Unknown]
  - Pyoderma gangrenosum [Unknown]
  - Psoriasis [Unknown]
  - Arthralgia [Unknown]
  - Wound decomposition [Unknown]
  - Sepsis [Unknown]
  - Malnutrition [Unknown]
  - Synovitis [Unknown]
  - Impaired healing [Unknown]

NARRATIVE: CASE EVENT DATE: 201809
